FAERS Safety Report 8694732 (Version 4)
Quarter: 2012Q4

REPORT INFORMATION
  Report Type: 
  Country: JP (occurrence: JP)
  Receive Date: 20120731
  Receipt Date: 20121019
  Transmission Date: 20130627
  Serious: Yes (Other)
  Sender: FDA-Public Use
  Company Number: JP-JNJFOC-20120713462

PATIENT
  Age: 7 None
  Sex: Female

DRUGS (2)
  1. TRAMCET [Suspect]
     Indication: PAIN
     Dosage: 4 per day
     Route: 048
     Dates: end: 20120725
  2. OXYCONTIN [Suspect]
     Indication: CANCER PAIN
     Dosage: 1 per day
     Route: 048
     Dates: start: 20120724

REACTIONS (2)
  - Neoplasm malignant [Not Recovered/Not Resolved]
  - Pain [Recovered/Resolved]
